FAERS Safety Report 7058698-8 (Version None)
Quarter: 2010Q4

REPORT INFORMATION
  Report Type: 
  Country: None (occurrence: None)
  Receive Date: 20101022
  Receipt Date: 20101019
  Transmission Date: 20110411
  Serious: Yes (Death, Hospitalization, Other)
  Sender: FDA-Public Use
  Company Number: MX-B.I. PHARMACEUTICALS,INC./RIDGEFIELD-2010-MX-00286MX

PATIENT
  Sex: Male
  Weight: 95 kg

DRUGS (5)
  1. SPIRIVA [Suspect]
     Indication: PULMONARY EMBOLISM
     Dosage: ONE CAPSULE
     Route: 055
     Dates: start: 20100902
  2. DABIGATRAN ETEXILATE [Suspect]
     Indication: ANTICOAGULANT THERAPY
     Dosage: 220 MG
     Route: 048
     Dates: start: 20100601
  3. SERETIDE [Concomitant]
     Indication: PULMONARY EMBOLISM
     Route: 055
  4. SINTROM [Concomitant]
     Indication: ANTICOAGULANT THERAPY
     Dosage: A HALF TABLET
     Route: 048
  5. OXYGEN [Concomitant]
     Indication: PULMONARY EMBOLISM
     Route: 055

REACTIONS (2)
  - INTESTINAL OBSTRUCTION [None]
  - RENAL FAILURE [None]
